FAERS Safety Report 8635313 (Version 3)
Quarter: 2012Q4

REPORT INFORMATION
  Report Type: 
  Country: US (occurrence: US)
  Receive Date: 20120626
  Receipt Date: 20120919
  Transmission Date: 20130627
  Serious: No
  Sender: FDA-Public Use
  Company Number: US-ASTRAZENECA-2012SE07600

PATIENT
  Age: 29 Year
  Sex: Male
  Weight: 79.4 kg

DRUGS (12)
  1. SEROQUEL [Suspect]
     Indication: SLEEP DISORDER
     Route: 048
     Dates: start: 2006
  2. SEROQUEL [Suspect]
     Indication: MIGRAINE
     Route: 048
     Dates: start: 2006
  3. SEROQUEL [Suspect]
     Indication: ANXIETY
     Route: 048
     Dates: start: 2006
  4. SEROQUEL [Suspect]
     Indication: SLEEP DISORDER
     Route: 048
  5. SEROQUEL [Suspect]
     Indication: MIGRAINE
     Route: 048
  6. SEROQUEL [Suspect]
     Indication: ANXIETY
     Route: 048
  7. SEROQUEL [Suspect]
     Indication: SLEEP DISORDER
     Dosage: 1/2 tablet
     Route: 048
  8. SEROQUEL [Suspect]
     Indication: MIGRAINE
     Dosage: 1/2 tablet
     Route: 048
  9. SEROQUEL [Suspect]
     Indication: ANXIETY
     Dosage: 1/2 tablet
     Route: 048
  10. SEROQUEL [Suspect]
     Indication: SLEEP DISORDER
     Route: 048
  11. SEROQUEL [Suspect]
     Indication: MIGRAINE
     Route: 048
  12. SEROQUEL [Suspect]
     Indication: ANXIETY
     Route: 048

REACTIONS (11)
  - Malaise [Unknown]
  - Insomnia [Unknown]
  - Feeling abnormal [Unknown]
  - Feeling abnormal [Unknown]
  - Impaired work ability [Unknown]
  - Somnolence [Unknown]
  - Intentional drug misuse [Unknown]
  - Drug dose omission [Unknown]
  - Drug ineffective [Unknown]
  - Off label use [Unknown]
  - Therapeutic response unexpected [Unknown]
